FAERS Safety Report 9539192 (Version 1)
Quarter: 2013Q2

REPORT INFORMATION
  Report Type: Spontaneous
  Country: US (occurrence: None)
  Receive Date: 20130507
  Receipt Date: 20130507
  Transmission Date: 20140414
  Serious: No
  Sender: FDA-Public Use
  Company Number: PHEH2013US003102

PATIENT
  Age: 64 Year
  Sex: Female

DRUGS (1)
  1. AFINITOR (RAD) [Suspect]
     Indication: NEOPLASM MALIGNANT
     Route: 048
     Dates: start: 20121111, end: 20130115

REACTIONS (1)
  - Rash generalised [None]
